FAERS Safety Report 15434831 (Version 1)
Quarter: 2018Q3

REPORT INFORMATION
  Report Type: Spontaneous
  Country: US (occurrence: US)
  Receive Date: 20180922
  Receipt Date: 20180922
  Transmission Date: 20181010
  Serious: Yes (Other)
  Sender: FDA-Public Use
  Company Number: None

PATIENT
  Age: 30 Year
  Sex: Female
  Weight: 51.75 kg

DRUGS (7)
  1. GABAPENTIN 100MG [Suspect]
     Active Substance: GABAPENTIN
     Indication: NEURALGIA
     Dosage: ?          QUANTITY:1 CAPSULE(S);?
     Route: 048
     Dates: start: 20180920, end: 20180921
  2. KLONOPIN [Concomitant]
     Active Substance: CLONAZEPAM
  3. PROPRANALOL [Concomitant]
     Active Substance: PROPRANOLOL HYDROCHLORIDE
  4. CYMBALTA [Concomitant]
     Active Substance: DULOXETINE HYDROCHLORIDE
  5. VITAMIN B12 [Concomitant]
     Active Substance: CYANOCOBALAMIN
  6. NUVIGIL [Concomitant]
     Active Substance: ARMODAFINIL
  7. ABILIFY [Concomitant]
     Active Substance: ARIPIPRAZOLE

REACTIONS (8)
  - Headache [None]
  - Musculoskeletal stiffness [None]
  - Aura [None]
  - Migraine [None]
  - Seizure [None]
  - Fine motor skill dysfunction [None]
  - Diplopia [None]
  - Tremor [None]

NARRATIVE: CASE EVENT DATE: 20180921
